FAERS Safety Report 8196250-1 (Version None)
Quarter: 2012Q1

REPORT INFORMATION
  Report Type: 
  Country: None (occurrence: None)
  Receive Date: 20120229
  Receipt Date: 20101124
  Transmission Date: 20120608
  Serious: No
  Sender: FDA-Public Use
  Company Number: 012120

PATIENT
  Sex: Female

DRUGS (1)
  1. SAMSCA [Suspect]
     Dosage: 15 MG, ORAL
     Route: 048

REACTIONS (1)
  - HYPONATRAEMIA [None]
